FAERS Safety Report 6412671-9 (Version None)
Quarter: 2009Q4

REPORT INFORMATION
  Report Type: 
  Country: None (occurrence: None)
  Receive Date: 20091023
  Receipt Date: 20091016
  Transmission Date: 20100525
  Serious: Yes (Other)
  Sender: FDA-Public Use
  Company Number: PHHO2005CA16782

PATIENT
  Sex: Male

DRUGS (6)
  1. SANDOSTATIN LAR [Suspect]
     Indication: HEPATIC NEOPLASM MALIGNANT NON-RESECTABLE
     Dosage: 20MG EVERY 4 WEEKS
     Dates: start: 20040906
  2. APO-CAL [Concomitant]
  3. IRON [Concomitant]
  4. URSO 250 [Concomitant]
  5. VIOXX [Concomitant]
  6. VITAMIN B-12 [Concomitant]

REACTIONS (2)
  - BLOOD GLUCOSE INCREASED [None]
  - BLOOD PRESSURE DECREASED [None]
